FAERS Safety Report 5143589-X (Version None)
Quarter: 2006Q4

REPORT INFORMATION
  Report Type: 
  Country: None (occurrence: None)
  Receive Date: 20061103
  Receipt Date: 20061024
  Transmission Date: 20070319
  Serious: Yes (Hospitalization)
  Sender: FDA-Public Use
  Company Number: US-ELI_LILLY_AND_COMPANY-US200610004464

PATIENT
  Age: 75 Year
  Sex: Male

DRUGS (6)
  1. CYMBALTA [Suspect]
     Indication: ANXIETY
     Dosage: 60 MG, DAILY (1/D)
     Dates: start: 20060101, end: 20061024
  2. ZYPREXA [Suspect]
     Dosage: 5 MG, UNK
  3. PROZAC [Concomitant]
  4. ABILIFY [Concomitant]
  5. ZOLOFT [Concomitant]
  6. LUVOX [Concomitant]

REACTIONS (8)
  - DEPRESSED MOOD [None]
  - EYE SWELLING [None]
  - FEELING GUILTY [None]
  - LYMPHOEDEMA [None]
  - OBSESSIVE THOUGHTS [None]
  - PERONEAL NERVE PALSY [None]
  - SUICIDAL IDEATION [None]
  - URINARY RETENTION [None]
